FAERS Safety Report 14597796 (Version 5)
Quarter: 2018Q4

REPORT INFORMATION
  Report Type: Spontaneous
  Country: US (occurrence: US)
  Receive Date: 20180305
  Receipt Date: 20181204
  Transmission Date: 20190204
  Serious: Yes (Death, Hospitalization)
  Sender: FDA-Public Use
  Company Number: US-PFIZER INC-2018085335

PATIENT
  Age: 68 Year
  Sex: Female

DRUGS (1)
  1. LYRICA [Suspect]
     Active Substance: PREGABALIN
     Indication: FIBROMYALGIA
     Dosage: 150 MG, UNK

REACTIONS (6)
  - Gait inability [Recovered/Resolved]
  - Tremor [Recovered/Resolved]
  - Death [Fatal]
  - Blood pressure decreased [Recovered/Resolved]
  - Withdrawal syndrome [Unknown]
  - Chills [Recovered/Resolved]
